FAERS Safety Report 6537905-1 (Version None)
Quarter: 2010Q1

REPORT INFORMATION
  Report Type: 
  Country: None (occurrence: None)
  Receive Date: 20100114
  Receipt Date: 20100111
  Transmission Date: 20100710
  Serious: Yes (Hospitalization, Disabling, Other)
  Sender: FDA-Public Use
  Company Number: US-MERCK-0910USA03486

PATIENT
  Age: 51 Year
  Sex: Female
  Weight: 70 kg

DRUGS (4)
  1. FOSAMAX [Suspect]
     Indication: OSTEOPOROSIS
     Route: 048
     Dates: start: 19980101, end: 20010109
  2. FOSAMAX [Suspect]
     Route: 048
     Dates: start: 20010101, end: 20071220
  3. AMBIEN [Concomitant]
     Indication: SLEEP DISORDER THERAPY
     Route: 065
     Dates: start: 19930101
  4. SYNTHROID [Concomitant]
     Indication: THYROIDECTOMY
     Route: 065
     Dates: start: 19760101

REACTIONS (8)
  - BONE DISORDER [None]
  - CONCUSSION [None]
  - DEPRESSION [None]
  - FEMUR FRACTURE [None]
  - LOW TURNOVER OSTEOPATHY [None]
  - OSTEOMA [None]
  - PYREXIA [None]
  - STRESS FRACTURE [None]
